FAERS Safety Report 7315041-4 (Version None)
Quarter: 2011Q1

REPORT INFORMATION
  Report Type: 
  Country: None (occurrence: None)
  Receive Date: 20110225
  Receipt Date: 20100316
  Transmission Date: 20110831
  Serious: Yes (Other)
  Sender: FDA-Public Use
  Company Number: US-MYLANLABS-2010S1004612

PATIENT
  Sex: Male

DRUGS (3)
  1. AMNESTEEM [Suspect]
     Indication: ACNE
     Dates: start: 20050501, end: 20051001
  2. ACCUTANE [Suspect]
     Indication: ACNE
     Dates: start: 19990201, end: 19990701
  3. ACCUTANE [Suspect]
     Dates: start: 20000901, end: 20010301

REACTIONS (1)
  - INFLAMMATORY BOWEL DISEASE [None]
